FAERS Safety Report 7124599-X (Version None)
Quarter: 2010Q4

REPORT INFORMATION
  Report Type: 
  Country: None (occurrence: None)
  Receive Date: 20101122
  Receipt Date: 20101122
  Transmission Date: 20110411
  Serious: Yes (Life-Threatening)
  Sender: FDA-Public Use
  Company Number: None

PATIENT
  Age: 50 Year
  Sex: Female
  Weight: 106.5953 kg

DRUGS (1)
  1. DARVOCET [Suspect]
     Indication: PAIN
     Dosage: 1 EVERY 4 HOURS PO
     Route: 048
     Dates: start: 20081101, end: 20101118

REACTIONS (3)
  - ATRIAL FIBRILLATION [None]
  - HEART RATE IRREGULAR [None]
  - SUPRAVENTRICULAR EXTRASYSTOLES [None]
